FAERS Safety Report 11375062 (Version 4)
Quarter: 2015Q4

REPORT INFORMATION
  Report Type: Spontaneous
  Country: US (occurrence: US)
  Receive Date: 20150813
  Receipt Date: 20151130
  Transmission Date: 20160304
  Serious: Yes (Hospitalization)
  Sender: FDA-Public Use
  Company Number: US-BAYER-2015-394977

PATIENT
  Age: 24 Year
  Sex: Female

DRUGS (1)
  1. MIRENA [Suspect]
     Active Substance: LEVONORGESTREL
     Indication: CONTRACEPTION
     Dosage: 20 MCG/24HR, CONT
     Route: 015
     Dates: start: 20111212, end: 20131122

REACTIONS (8)
  - Uterine perforation [Recovered/Resolved]
  - Genital haemorrhage [None]
  - Pain [Recovered/Resolved]
  - Peritoneal adhesions [None]
  - Gallbladder enlargement [None]
  - Injury [Recovered/Resolved]
  - Abdominal pain [Recovered/Resolved]
  - Device issue [None]

NARRATIVE: CASE EVENT DATE: 201112
